FAERS Safety Report 9483759 (Version 1)
Quarter: 2013Q3

REPORT INFORMATION
  Report Type: Spontaneous
  Country: US (occurrence: US)
  Receive Date: 20130828
  Receipt Date: 20130828
  Transmission Date: 20140515
  Serious: No
  Sender: FDA-Public Use
  Company Number: US-009507513-1308USA012723

PATIENT
  Sex: Female

DRUGS (4)
  1. ZEGERID OTC CAPSULES [Suspect]
     Indication: ILL-DEFINED DISORDER
     Dosage: 40 MG, QD
     Route: 048
  2. ZEGERID OTC CAPSULES [Suspect]
     Indication: DYSPEPSIA
  3. ZEGERID OTC CAPSULES [Suspect]
     Indication: PAIN
  4. ZEGERID OTC CAPSULES [Suspect]
     Indication: MEDICAL OBSERVATION

REACTIONS (3)
  - Foreign body [Recovered/Resolved]
  - Overdose [Unknown]
  - Drug effect decreased [Unknown]
